FAERS Safety Report 10185958 (Version 2)
Quarter: 2014Q2

REPORT INFORMATION
  Report Type: Spontaneous
  Country: US (occurrence: US)
  Receive Date: 20140521
  Receipt Date: 20140521
  Transmission Date: 20141212
  Serious: No
  Sender: FDA-Public Use
  Company Number: US-MYLANLABS-2014S1006698

PATIENT
  Age: 53 Year
  Sex: Male
  Weight: 127.01 kg

DRUGS (14)
  1. CLINDAMYCIN HYDROCHLORIDE [Suspect]
     Indication: ANTIBIOTIC PROPHYLAXIS
     Route: 048
     Dates: start: 201103, end: 201103
  2. GLYBURIDE [Concomitant]
     Route: 048
  3. TESTOSTERONE [Concomitant]
  4. TAMSULOSIN [Concomitant]
     Route: 048
  5. LOVASTATIN [Concomitant]
     Route: 048
  6. NEBIVOLOL [Concomitant]
     Route: 048
  7. OMEPRAZOLE [Concomitant]
     Route: 048
  8. CENTRUM SILVER [Concomitant]
     Route: 048
  9. VITAMIN B-12 [Concomitant]
     Route: 048
  10. ASPIRIN [Concomitant]
     Route: 048
  11. GLUCOSAMINE [Concomitant]
  12. SAW PALMETTO [Concomitant]
  13. ENALAPRIL [Concomitant]
  14. LISINOPRIL [Concomitant]

REACTIONS (1)
  - Tinnitus [Not Recovered/Not Resolved]
